FAERS Safety Report 4390345-6 (Version None)
Quarter: 2004Q2

REPORT INFORMATION
  Report Type: 
  Country: None (occurrence: None)
  Receive Date: 20040630
  Receipt Date: 20040614
  Transmission Date: 20050107
  Serious: Yes (Other)
  Sender: FDA-Public Use
  Company Number: DEWYE333507OCT03

PATIENT
  Age: 33 Year
  Sex: Female

DRUGS (2)
  1. TREVILOR (VENLAFAXINE HYDROCHLORIDE, TABLET, 0) [Suspect]
     Indication: DEPRESSION
     Dosage: 225 MG DAILY UNTIL 7TH GESTATIONAL WEEK, ORAL
     Route: 048
     Dates: start: 20030601, end: 20031009
  2. JODID (POTASSIUM IODINE) [Concomitant]

REACTIONS (3)
  - CAESAREAN SECTION [None]
  - COMPLICATIONS OF MATERNAL EXPOSURE TO THERAPEUTIC DRUGS [None]
  - PREMATURE RUPTURE OF MEMBRANES [None]
